FAERS Safety Report 17933431 (Version 2)
Quarter: 2021Q1

REPORT INFORMATION
  Report Type: Spontaneous
  Country: CN (occurrence: CN)
  Receive Date: 20200623
  Receipt Date: 20210125
  Transmission Date: 20210419
  Serious: Yes (Other)
  Sender: FDA-Public Use
  Company Number: CN-PFIZER INC-2020241756

PATIENT
  Age: 39 Year
  Sex: Female
  Weight: 60 kg

DRUGS (4)
  1. PANTOLOC [Suspect]
     Active Substance: PANTOPRAZOLE SODIUM
     Indication: DUODENAL ULCER
     Dosage: 40 MG, 2X/DAY
     Route: 065
     Dates: start: 20190927, end: 20190929
  2. DEANXIT [Suspect]
     Active Substance: FLUPENTIXOL DIHYDROCHLORIDE\MELITRACEN HYDROCHLORIDE
     Indication: AUTONOMIC NERVOUS SYSTEM IMBALANCE
     Dosage: 1 DF, 2X/DAY
     Route: 048
     Dates: start: 20190927, end: 20190929
  3. KUAI LI [Suspect]
     Active Substance: MOSAPRIDE CITRATE
     Indication: DYSPEPSIA
     Dosage: 5 MG, 3X/DAY
     Route: 048
     Dates: start: 20190927, end: 20190929
  4. COMBIZYM [ASPERGILLUS ORYZAE ENZYME;PANCREATIN] [Suspect]
     Active Substance: ASPERGILLUS FLAVUS VAR. ORYZAE\PANCRELIPASE
     Indication: DYSPEPSIA
     Dosage: 1 DF, 3X/DAY
     Route: 048
     Dates: start: 20190927, end: 20190929

REACTIONS (4)
  - Swelling [Recovering/Resolving]
  - Pruritus [Recovering/Resolving]
  - Rash [Recovering/Resolving]
  - Erythema [Recovering/Resolving]

NARRATIVE: CASE EVENT DATE: 20190927
